FAERS Safety Report 6549549-6 (Version None)
Quarter: 2010Q1

REPORT INFORMATION
  Report Type: 
  Country: None (occurrence: None)
  Receive Date: 20100125
  Receipt Date: 20100118
  Transmission Date: 20100710
  Serious: Yes (Hospitalization)
  Sender: FDA-Public Use
  Company Number: FR-B.I. PHARMACEUTICALS,INC./RIDGEFIELD-2010-FF-00043FF

PATIENT
  Age: 63 Year
  Sex: Male

DRUGS (7)
  1. MICARDIS [Suspect]
     Indication: HYPERTENSION
     Dosage: 40 MG
     Route: 048
  2. MICARDIS [Suspect]
     Dosage: 20 MG
     Route: 048
  3. OMEXEL [Concomitant]
     Indication: PROSTATIC ADENOMA
  4. TADENAN [Concomitant]
     Indication: PROSTATIC ADENOMA
  5. FLECAINIDE ACETATE [Concomitant]
  6. PREVISCAN [Concomitant]
  7. SECTRAL [Concomitant]

REACTIONS (3)
  - BLOOD PRESSURE DECREASED [None]
  - PROSTATITIS [None]
  - URINARY TRACT INFECTION [None]
